FAERS Safety Report 9216232 (Version 2)
Quarter: 2013Q2

REPORT INFORMATION
  Report Type: Spontaneous
  Country: US (occurrence: US)
  Receive Date: 20130408
  Receipt Date: 20130423
  Transmission Date: 20140414
  Serious: Yes (Death, Other)
  Sender: FDA-Public Use
  Company Number: US-ASTELLAS-2013US003684

PATIENT
  Age: 65 Year
  Sex: Male

DRUGS (2)
  1. PROGRAF [Suspect]
     Indication: HEART TRANSPLANT
     Dosage: 2.5 MG, BID
     Route: 048
     Dates: start: 20110201, end: 20130319
  2. PROGRAF [Suspect]
     Dosage: 5 MG, UID/QD
     Route: 048

REACTIONS (6)
  - Diabetic complication [Fatal]
  - Multi-organ failure [Fatal]
  - Neoplasm malignant [Fatal]
  - Leg amputation [Unknown]
  - Sepsis [Fatal]
  - Diabetes mellitus [Unknown]
